FAERS Safety Report 12271774 (Version 1)
Quarter: 2016Q2

REPORT INFORMATION
  Report Type: Spontaneous
  Country: US (occurrence: None)
  Receive Date: 20160414
  Receipt Date: 20160414
  Transmission Date: 20160815
  Serious: No
  Sender: FDA-Public Use
  Company Number: None

PATIENT
  Age: 85 Year
  Sex: Female

DRUGS (24)
  1. EXEMESTANE. [Concomitant]
     Active Substance: EXEMESTANE
  2. FERROUS SULF [Concomitant]
  3. GLIMEPRIDE [Concomitant]
     Active Substance: GLIMEPIRIDE
  4. XGEVA [Concomitant]
     Active Substance: DENOSUMAB
  5. ASPIRIN. [Concomitant]
     Active Substance: ASPIRIN
  6. FISH OIL [Concomitant]
     Active Substance: FISH OIL
  7. GABAPENTIN. [Concomitant]
     Active Substance: GABAPENTIN
  8. JANUVIA [Concomitant]
     Active Substance: SITAGLIPTIN PHOSPHATE
  9. PRESERVISION [Concomitant]
     Active Substance: MINERALS\VITAMINS
  10. DULOXETINE. [Concomitant]
     Active Substance: DULOXETINE
  11. LEVOTHYROXIN [Concomitant]
     Active Substance: LEVOTHYROXINE
  12. VALSARTAN. [Concomitant]
     Active Substance: VALSARTAN
  13. METFORMIN [Concomitant]
     Active Substance: METFORMIN HYDROCHLORIDE
  14. ZETIA [Concomitant]
     Active Substance: EZETIMIBE
  15. DOCUSATE SOD [Concomitant]
  16. TRAMADOL HCL [Concomitant]
     Active Substance: TRAMADOL HYDROCHLORIDE
  17. AFINITOR [Suspect]
     Active Substance: EVEROLIMUS
     Indication: NEOPLASM MALIGNANT
     Route: 048
     Dates: start: 20160315
  18. CARBIDOPA. [Concomitant]
     Active Substance: CARBIDOPA
  19. METOPROLOL TARTRATE. [Concomitant]
     Active Substance: METOPROLOL TARTRATE
  20. OXYCODONE AND ACETAMINOPHEN [Concomitant]
     Active Substance: ACETAMINOPHEN\OXYCODONE HYDROCHLORIDE
  21. BIOTIN [Concomitant]
     Active Substance: BIOTIN
  22. OYSTER SHELL [Concomitant]
     Active Substance: OSTREA EDULIS SHELL
  23. PANTOPRAZOLE [Concomitant]
     Active Substance: PANTOPRAZOLE SODIUM
  24. VITAMIN C [Concomitant]
     Active Substance: ASCORBIC ACID

REACTIONS (1)
  - Feeling cold [None]

NARRATIVE: CASE EVENT DATE: 201603
